FAERS Safety Report 8492152-1 (Version None)
Quarter: 2012Q3

REPORT INFORMATION
  Report Type: 
  Country: None (occurrence: None)
  Receive Date: 20120706
  Receipt Date: 20120704
  Transmission Date: 20120928
  Serious: Yes (Death)
  Sender: FDA-Public Use
  Company Number: PHHY2012AR057861

PATIENT
  Sex: Male

DRUGS (2)
  1. DIOVAN [Suspect]
     Indication: BLOOD PRESSURE
  2. DIOVAN [Suspect]
     Indication: CARDIAC DISORDER
     Dosage: 320 MG, UNK
     Dates: start: 20110901

REACTIONS (1)
  - SUDDEN DEATH [None]
